FAERS Safety Report 8131869-5 (Version None)
Quarter: 2012Q1

REPORT INFORMATION
  Report Type: 
  Country: None (occurrence: None)
  Receive Date: 20120213
  Receipt Date: 20120210
  Transmission Date: 20120608
  Serious: Yes (Other)
  Sender: FDA-Public Use
  Company Number: US-PFIZER INC-2012037299

PATIENT
  Sex: Female
  Weight: 90.703 kg

DRUGS (12)
  1. ALTACE [Concomitant]
     Indication: CARDIAC DISORDER
     Dosage: 5 MG, UNK
     Route: 048
  2. COLESTID [Suspect]
     Indication: DIARRHOEA
     Dosage: UNK
     Route: 048
     Dates: start: 20110901
  3. ALTACE [Concomitant]
     Indication: HYPERTENSION
  4. COLESTIPOL HYDROCHLORIDE [Suspect]
     Indication: DIARRHOEA
     Dosage: 1 MG, 3X/DAY
     Route: 048
  5. TOPROL-XL [Concomitant]
     Indication: CARDIAC DISORDER
     Dosage: 50 MG, UNK
     Route: 048
  6. TOPROL-XL [Concomitant]
     Indication: HYPERTENSION
  7. SYNTHROID [Concomitant]
     Indication: THYROID DISORDER
     Dosage: 137 UG, UNK
     Route: 048
  8. ASPIRIN [Concomitant]
     Indication: ANTICOAGULANT THERAPY
     Dosage: 81 MG, UNK
  9. IMODIUM [Concomitant]
     Indication: DIARRHOEA
     Dosage: UNK
  10. LOMOTIL [Concomitant]
     Indication: DIARRHOEA
     Dosage: UNK
  11. NITROGLYCERIN [Concomitant]
     Dosage: UNK
  12. HYDROCHLOROTHIAZIDE [Concomitant]
     Indication: HYPERTENSION
     Dosage: 50 MG, UNK

REACTIONS (3)
  - CHOKING [None]
  - DRUG INEFFECTIVE [None]
  - RETCHING [None]
